FAERS Safety Report 17601659 (Version 1)
Quarter: 2020Q1

REPORT INFORMATION
  Report Type: Spontaneous
  Country: US (occurrence: US)
  Receive Date: 20200331
  Receipt Date: 20200331
  Transmission Date: 20200409
  Serious: No
  Sender: FDA-Public Use
  Company Number: US-GLAXOSMITHKLINE-US2020AMR051161

PATIENT
  Sex: Female

DRUGS (1)
  1. ZEJULA [Suspect]
     Active Substance: NIRAPARIB
     Indication: OVARIAN CANCER
     Dosage: 100 MG, 100MG ALTERNATING
     Dates: start: 20190204

REACTIONS (3)
  - Haemoglobin decreased [Unknown]
  - Dyspnoea [Unknown]
  - Carbohydrate antigen 125 [Unknown]
